FAERS Safety Report 22879276 (Version 2)
Quarter: 2024Q4

REPORT INFORMATION
  Report Type: Spontaneous
  Country: US (occurrence: US)
  Receive Date: 20230829
  Receipt Date: 20241203
  Transmission Date: 20250114
  Serious: Yes (Other)
  Sender: NOVARTIS
  Company Number: US-002147023-NVSC2023US185092

PATIENT
  Age: 40 Year
  Sex: Female

DRUGS (1)
  1. ASCIMINIB [Suspect]
     Active Substance: ASCIMINIB
     Indication: Chronic myeloid leukaemia recurrent
     Dosage: 200 MG, BID
     Route: 065
     Dates: start: 202305, end: 20230727

REACTIONS (4)
  - Moyamoya disease [Unknown]
  - Cerebral artery occlusion [Unknown]
  - Aphasia [Recovering/Resolving]
  - Cerebral infarction [Unknown]

NARRATIVE: CASE EVENT DATE: 20230802
